FAERS Safety Report 8812451 (Version 1)
Quarter: 2012Q4

REPORT INFORMATION
  Report Type: 
  Country: BR (occurrence: BR)
  Receive Date: 20120927
  Receipt Date: 20120927
  Transmission Date: 20130627
  Serious: Yes (Death, Hospitalization)
  Sender: FDA-Public Use
  Company Number: BR-B.I. PHARMACEUTICALS,INC./RIDGEFIELD-2012-BR-01096BR

PATIENT
  Age: 65 Year
  Sex: Male
  Weight: 90 kg

DRUGS (6)
  1. PRADAXA [Suspect]
     Indication: CEREBROVASCULAR ACCIDENT PROPHYLAXIS
     Dosage: 300 mg
     Route: 048
     Dates: start: 201206, end: 201207
  2. PRADAXA [Suspect]
     Dosage: 220 mg
     Route: 048
     Dates: start: 201207
  3. DIAMICRON [Concomitant]
     Indication: DIABETES MELLITUS
  4. ANCORON [Concomitant]
     Indication: ATRIAL FIBRILLATION
  5. CARVEDILOL [Concomitant]
     Indication: ATRIAL FIBRILLATION
  6. LOSARTAN [Concomitant]
     Indication: HYPERTENSION

REACTIONS (2)
  - Ischaemic stroke [Fatal]
  - Gastrointestinal haemorrhage [Recovered/Resolved]
